FAERS Safety Report 4795395-3 (Version None)
Quarter: 2005Q4

REPORT INFORMATION
  Report Type: 
  Country: None (occurrence: None)
  Receive Date: 20051007
  Receipt Date: 20050926
  Transmission Date: 20060501
  Serious: Yes (Death)
  Sender: FDA-Public Use
  Company Number: 200513051GDS

PATIENT
  Age: 43 Year

DRUGS (2)
  1. NIFEDIPINE [Suspect]
  2. DIPHENHYDRAMINE HCL [Suspect]

REACTIONS (2)
  - COMPLETED SUICIDE [None]
  - MULTIPLE DRUG OVERDOSE [None]
